FAERS Safety Report 18980984 (Version 1)
Quarter: 2021Q1

REPORT INFORMATION
  Report Type: Spontaneous
  Country: US (occurrence: US)
  Receive Date: 20210307
  Receipt Date: 20210307
  Transmission Date: 20210420
  Serious: Yes (Hospitalization)
  Sender: FDA-Public Use
  Company Number: None

PATIENT
  Age: 74 Year
  Sex: Female
  Weight: 59.4 kg

DRUGS (7)
  1. NP THYROID [Suspect]
     Active Substance: LEVOTHYROXINE\LIOTHYRONINE
     Indication: HYPOTHYROIDISM
     Dosage: ?          QUANTITY:3 TABLET(S);?
     Route: 048
     Dates: start: 20210202, end: 20210307
  2. ELIQUIS [Concomitant]
     Active Substance: APIXABAN
  3. TIMED RELEASE VITAMIN C [Concomitant]
  4. METOPROLOL. [Concomitant]
     Active Substance: METOPROLOL
  5. MAGNESIUM [Concomitant]
     Active Substance: MAGNESIUM
  6. MULTI VITAMIN [Concomitant]
     Active Substance: VITAMINS
  7. VIACTIV [Concomitant]

REACTIONS (3)
  - Heart rate irregular [None]
  - Injury [None]
  - Atrial fibrillation [None]

NARRATIVE: CASE EVENT DATE: 20210306
